FAERS Safety Report 17333157 (Version 3)
Quarter: 2020Q2

REPORT INFORMATION
  Report Type: Report from Study
  Country: US (occurrence: US)
  Receive Date: 20200128
  Receipt Date: 20200626
  Transmission Date: 20200713
  Serious: Yes (Hospitalization)
  Sender: FDA-Public Use
  Company Number: US-ACTELION-A-NJ2017-154833

PATIENT
  Age: 67 Year
  Sex: Female
  Weight: 97.51 kg

DRUGS (2)
  1. OPSUMIT [Suspect]
     Active Substance: MACITENTAN
     Indication: PULMONARY ARTERIAL HYPERTENSION
     Dosage: 10 MG, QD
     Route: 048
  2. OPSUMIT [Suspect]
     Active Substance: MACITENTAN
     Dosage: 10 MG, QD
     Route: 048

REACTIONS (21)
  - Fatigue [Unknown]
  - Erythema [Unknown]
  - Head injury [Unknown]
  - Chest pain [Unknown]
  - Amnesia [Unknown]
  - Weight decreased [Unknown]
  - Palpitations [Unknown]
  - Eye contusion [Unknown]
  - Tongue blistering [Recovered/Resolved]
  - Influenza [Unknown]
  - Dyspnoea exertional [Unknown]
  - Spinal operation [Unknown]
  - Disturbance in attention [Unknown]
  - Condition aggravated [Unknown]
  - Headache [Unknown]
  - Fall [Unknown]
  - Product dose omission [Unknown]
  - Pain [Unknown]
  - Contusion [Unknown]
  - Syncope [Unknown]
  - Swelling [Unknown]

NARRATIVE: CASE EVENT DATE: 20200110
